FAERS Safety Report 8525838-0 (Version None)
Quarter: 2012Q3

REPORT INFORMATION
  Report Type: 
  Country: None (occurrence: None)
  Receive Date: 20120720
  Receipt Date: 20120709
  Transmission Date: 20120928
  Serious: Yes (Other)
  Sender: FDA-Public Use
  Company Number: GB-ELI_LILLY_AND_COMPANY-GB201207002686

PATIENT
  Age: 63 Year
  Sex: Female
  Weight: 129 kg

DRUGS (6)
  1. EXENATIDE [Suspect]
     Dosage: 10 UG, BID
     Route: 058
     Dates: start: 20111101
  2. GLICLAZIDE [Concomitant]
  3. CANDESARTAN [Concomitant]
  4. RANITIDINE [Concomitant]
  5. BEZAFIBRATE [Concomitant]
  6. METFORMIN HCL [Concomitant]

REACTIONS (1)
  - PALPITATIONS [None]
